FAERS Safety Report 16883755 (Version 2)
Quarter: 2019Q4

REPORT INFORMATION
  Report Type: Spontaneous
  Country: BR (occurrence: BR)
  Receive Date: 20191004
  Receipt Date: 20191031
  Transmission Date: 20200122
  Serious: Yes (Other)
  Sender: FDA-Public Use
  Company Number: BR-SA-2019SA111642

PATIENT
  Sex: Female

DRUGS (3)
  1. TRESIBA [Concomitant]
     Active Substance: INSULIN DEGLUDEC
     Dosage: UNK, QD
     Route: 065
  2. APIDRA SOLOSTAR [Suspect]
     Active Substance: INSULIN GLULISINE
     Indication: DIABETES MELLITUS
     Dosage: WHENEVER THE PATIENT?S GLYCEMIA WAS ABOVE 150
     Route: 065
  3. APIDRA SOLOSTAR [Suspect]
     Active Substance: INSULIN GLULISINE
     Dosage: UNK, QD
     Route: 058

REACTIONS (6)
  - Blood glucose increased [Recovered/Resolved]
  - Wrong technique in device usage process [Unknown]
  - Device operational issue [Recovered/Resolved]
  - Incorrect dose administered by device [Recovered/Resolved]
  - Deafness [Unknown]
  - Product storage error [Unknown]
